FAERS Safety Report 14229895 (Version 2)
Quarter: 2018Q1

REPORT INFORMATION
  Report Type: Report from Study
  Country: HT (occurrence: HT)
  Receive Date: 20171128
  Receipt Date: 20180208
  Transmission Date: 20180508
  Serious: Yes (Hospitalization)
  Sender: FDA-Public Use
  Company Number: HT-JNJFOC-20151019638

PATIENT
  Age: 51 Year
  Sex: Male
  Weight: 82.3 kg

DRUGS (13)
  1. ETRAVIRINE [Suspect]
     Active Substance: ETRAVIRINE
     Indication: HIV INFECTION
     Route: 048
     Dates: start: 20150907
  2. ERYTHROMYCINE [Concomitant]
     Active Substance: ERYTHROMYCIN
     Indication: COUGH
     Route: 065
     Dates: end: 20151020
  3. BROMHEXINE [Concomitant]
     Active Substance: BROMHEXINE
     Indication: COUGH
     Route: 065
     Dates: end: 20151019
  4. VITAMIN B6 [Concomitant]
     Active Substance: PYRIDOXINE HYDROCHLORIDE
     Route: 065
     Dates: start: 20141206
  5. SULFAMETHOXAZOLE/TRIMETHOPRIM [Concomitant]
     Active Substance: SULFAMETHOXAZOLE\TRIMETHOPRIM
     Route: 065
     Dates: start: 20041206
  6. IRON/FOLIC ACID [Concomitant]
     Route: 065
     Dates: start: 20041206
  7. TMC114 [Suspect]
     Active Substance: DARUNAVIR
     Indication: HIV INFECTION
     Route: 048
     Dates: start: 20150907
  8. RALTEGRAVIR. [Suspect]
     Active Substance: RALTEGRAVIR
     Indication: HIV INFECTION
     Route: 048
     Dates: start: 20150907
  9. HYDROCHLOROTHIAZIDE. [Concomitant]
     Active Substance: HYDROCHLOROTHIAZIDE
     Indication: HYPERTENSION
     Route: 065
     Dates: end: 20151020
  10. ISONIAZID. [Concomitant]
     Active Substance: ISONIAZID
     Route: 065
     Dates: start: 20141212
  11. IBUPROFEN. [Concomitant]
     Active Substance: IBUPROFEN
     Indication: TONSILLAR HYPERTROPHY
     Route: 065
     Dates: end: 20151019
  12. RITONAVIR. [Suspect]
     Active Substance: RITONAVIR
     Indication: HIV INFECTION
     Route: 048
     Dates: start: 20150907
  13. ENALAPRIL [Concomitant]
     Active Substance: ENALAPRIL
     Indication: HYPERTENSION
     Route: 065
     Dates: end: 20151020

REACTIONS (2)
  - Hepatotoxicity [Recovered/Resolved]
  - Idiopathic interstitial pneumonia [Recovered/Resolved]

NARRATIVE: CASE EVENT DATE: 20151020
